FAERS Safety Report 19605133 (Version 1)
Quarter: 2021Q3

REPORT INFORMATION
  Report Type: Spontaneous
  Country: CN (occurrence: CN)
  Receive Date: 20210723
  Receipt Date: 20210723
  Transmission Date: 20211014
  Serious: Yes (Other)
  Sender: FDA-Public Use
  Company Number: CN-ROCHE-2872582

PATIENT
  Age: 43 Year
  Sex: Female

DRUGS (8)
  1. HERCEPTIN [Suspect]
     Active Substance: TRASTUZUMAB
     Dosage: THP
     Route: 042
     Dates: start: 2020
  2. PACLITAXEL. [Concomitant]
     Active Substance: PACLITAXEL
     Indication: INVASIVE BREAST CARCINOMA
     Dosage: THP
     Dates: start: 2020
  3. HERCEPTIN [Suspect]
     Active Substance: TRASTUZUMAB
     Indication: INVASIVE BREAST CARCINOMA
     Dosage: TCBHP FOR 3 CYCLES
     Route: 042
     Dates: start: 2020
  4. ZOLEDRONIC ACID [Concomitant]
     Active Substance: ZOLEDRONIC ACID
     Dates: start: 2020
  5. DOCETAXEL. [Suspect]
     Active Substance: DOCETAXEL
     Indication: INVASIVE BREAST CARCINOMA
     Dosage: TCBHP FOR 3 CYCLES
     Route: 065
     Dates: start: 2020
  6. PERJETA [Suspect]
     Active Substance: PERTUZUMAB
     Indication: INVASIVE BREAST CARCINOMA
     Dosage: TCBHP FOR 3 CYCLES
     Route: 042
     Dates: start: 2020
  7. CARBOPLATIN. [Suspect]
     Active Substance: CARBOPLATIN
     Indication: INVASIVE BREAST CARCINOMA
     Dosage: TCBHP FOR 3 CYCLES
     Route: 065
     Dates: start: 2020
  8. PERJETA [Suspect]
     Active Substance: PERTUZUMAB
     Dosage: THP
     Route: 042
     Dates: start: 2020

REACTIONS (3)
  - Myelosuppression [Unknown]
  - Hypokalaemia [Unknown]
  - Hyponatraemia [Unknown]
